FAERS Safety Report 6986149-8 (Version None)
Quarter: 2010Q3

REPORT INFORMATION
  Report Type: 
  Country: None (occurrence: None)
  Receive Date: 20100915
  Receipt Date: 20090618
  Transmission Date: 20110219
  Serious: No
  Sender: FDA-Public Use
  Company Number: US-WYE-H09464909

PATIENT
  Sex: Female
  Weight: 98.06 kg

DRUGS (6)
  1. PRISTIQ [Suspect]
     Indication: DEPRESSION
     Route: 048
     Dates: start: 20090401
  2. SYMBICORT [Concomitant]
  3. ALBUTEROL [Concomitant]
  4. SYNTHROID [Concomitant]
  5. DIOVAN [Concomitant]
  6. PRILOSEC [Concomitant]

REACTIONS (7)
  - ABNORMAL DREAMS [None]
  - ANXIETY [None]
  - CONSTIPATION [None]
  - DIZZINESS [None]
  - DRY MOUTH [None]
  - HEADACHE [None]
  - TREMOR [None]
